FAERS Safety Report 16991678 (Version 1)
Quarter: 2019Q4

REPORT INFORMATION
  Report Type: Report from Study
  Country: None (occurrence: NL)
  Receive Date: 20191104
  Receipt Date: 20191104
  Transmission Date: 20200122
  Serious: Yes (Hospitalization, Other)
  Sender: FDA-Public Use
  Company Number: NL-ABBVIE-19K-114-2987680-00

PATIENT
  Age: 70 Year
  Sex: Female

DRUGS (1)
  1. DUODOPA [Suspect]
     Active Substance: CARBIDOPA\LEVODOPA
     Indication: PRODUCT USED FOR UNKNOWN INDICATION
     Dosage: MD 10.0, CD 5.6, ED 1.0
     Route: 050
     Dates: start: 20160304

REACTIONS (4)
  - Hypothermia [Recovered/Resolved]
  - Fall [Unknown]
  - Road traffic accident [Unknown]
  - Device physical property issue [Unknown]

NARRATIVE: CASE EVENT DATE: 20191029
